FAERS Safety Report 4522153-7 (Version None)
Quarter: 2004Q4

REPORT INFORMATION
  Report Type: 
  Country: None (occurrence: None)
  Receive Date: 20041207
  Receipt Date: 20041118
  Transmission Date: 20050328
  Serious: Yes (Life-Threatening, Hospitalization, Other)
  Sender: FDA-Public Use
  Company Number: USA041184110

PATIENT
  Age: 50 Year
  Sex: Female
  Weight: 60 kg

DRUGS (7)
  1. ZYPREXA [Suspect]
     Indication: BIPOLAR DISORDER
     Dosage: 20 MG DAY
     Dates: start: 19990101, end: 20040601
  2. LITHIUM [Concomitant]
  3. WELLBUTRIN [Concomitant]
  4. DEPAKOTE (VALPROATE SEMISDOIUM) [Concomitant]
  5. AMBIEN [Concomitant]
  6. FLONASE [Concomitant]
  7. NEXIUM [Concomitant]

REACTIONS (8)
  - BLOOD SODIUM DECREASED [None]
  - BLOOD TEST ABNORMAL [None]
  - CARDIAC ARREST [None]
  - GRAND MAL CONVULSION [None]
  - NERVOUS SYSTEM DISORDER [None]
  - THROMBOSIS [None]
  - UNEVALUABLE EVENT [None]
  - URINE ANALYSIS ABNORMAL [None]
